FAERS Safety Report 19384224 (Version 1)
Quarter: 2021Q2

REPORT INFORMATION
  Report Type: Spontaneous
  Country: US (occurrence: US)
  Receive Date: 20210608
  Receipt Date: 20210608
  Transmission Date: 20210717
  Serious: No
  Sender: FDA-Public Use
  Company Number: US-CELGENEUS-USA-20210507848

PATIENT
  Sex: Male
  Weight: 100.33 kg

DRUGS (3)
  1. LOSARTAN. [Concomitant]
     Active Substance: LOSARTAN
     Dosage: 50 MILLIGRAM
     Route: 065
  2. REVLIMID [Suspect]
     Active Substance: LENALIDOMIDE
     Indication: PLASMA CELL MYELOMA
     Dosage: 25 MILLIGRAM
     Route: 048
     Dates: start: 20210423
  3. LOSARTAN. [Concomitant]
     Active Substance: LOSARTAN
     Indication: ORTHOSTATIC HYPOTENSION
     Dosage: 100 MILLIGRAM
     Route: 065

REACTIONS (2)
  - Orthostatic hypotension [Unknown]
  - Fall [Unknown]

NARRATIVE: CASE EVENT DATE: 2021
